FAERS Safety Report 24692472 (Version 1)
Quarter: 2024Q4

REPORT INFORMATION
  Report Type: Spontaneous
  Country: FR (occurrence: FR)
  Receive Date: 20241203
  Receipt Date: 20241203
  Transmission Date: 20250115
  Serious: Yes (Hospitalization)
  Sender: FRESENIUS KABI
  Company Number: None

PATIENT
  Age: 54 Year
  Sex: Male

DRUGS (1)
  1. LINEZOLID [Suspect]
     Active Substance: LINEZOLID
     Indication: Infection
     Route: 042
     Dates: start: 20240304, end: 20240525

REACTIONS (1)
  - Hepatitis acute [Not Recovered/Not Resolved]

NARRATIVE: CASE EVENT DATE: 20240511
